FAERS Safety Report 8251122-9 (Version None)
Quarter: 2012Q1

REPORT INFORMATION
  Report Type: 
  Country: None (occurrence: None)
  Receive Date: 20120328
  Receipt Date: 20120314
  Transmission Date: 20120608
  Serious: Yes (Hospitalization, Other)
  Sender: FDA-Public Use
  Company Number: 2012SP015538

PATIENT
  Age: 38 Year
  Sex: Male

DRUGS (2)
  1. CLARINEX D 24 HOUR [Suspect]
     Indication: PRODUCT USED FOR UNKNOWN INDICATION
     Dosage: QD;PO, QD;PO
     Route: 048
     Dates: start: 20120313
  2. CLARINEX D 24 HOUR [Suspect]
     Indication: PRODUCT USED FOR UNKNOWN INDICATION
     Dosage: QD;PO, QD;PO
     Route: 048
     Dates: start: 20120314

REACTIONS (4)
  - NERVOUSNESS [None]
  - DIZZINESS [None]
  - DYSPNOEA [None]
  - FEELING OF BODY TEMPERATURE CHANGE [None]
